FAERS Safety Report 21140500 (Version 6)
Quarter: 2022Q3

REPORT INFORMATION
  Report Type: Spontaneous
  Country: CA (occurrence: CA)
  Receive Date: 20220728
  Receipt Date: 20220920
  Transmission Date: 20221027
  Serious: Yes (Hospitalization, Other)
  Sender: FDA-Public Use
  Company Number: CA-CELLTRION INC.-2022CA008656

PATIENT

DRUGS (5)
  1. INFLECTRA [Suspect]
     Active Substance: INFLIXIMAB-DYYB
     Indication: Rheumatoid arthritis
     Dosage: 400 MG, WEEK 0, 2, 6 THEN EVERY 6 WEEKS,
     Route: 042
     Dates: start: 20220530
  2. INFLECTRA [Suspect]
     Active Substance: INFLIXIMAB-DYYB
     Dosage: 400 MG, WEEK 0, 2, 6 THEN EVERY 6 WEEKS,
     Route: 042
     Dates: start: 20220613
  3. INFLECTRA [Suspect]
     Active Substance: INFLIXIMAB-DYYB
     Dosage: 400 MG ,WEEK 0, 2, 6 THEN EVERY 6 WEEKS
     Route: 042
     Dates: start: 20220907
  4. LEFLUNOMIDE [Concomitant]
     Active Substance: LEFLUNOMIDE
     Dosage: 1 DF
  5. ORENCIA [Concomitant]
     Active Substance: ABATACEPT
     Dosage: 1 DF

REACTIONS (13)
  - Pancreatitis [Not Recovered/Not Resolved]
  - Off label use [Unknown]
  - Off label use [Unknown]
  - Inappropriate schedule of product administration [Unknown]
  - Vomiting [Not Recovered/Not Resolved]
  - Blood glucose increased [Not Recovered/Not Resolved]
  - Nasal congestion [Not Recovered/Not Resolved]
  - Cough [Not Recovered/Not Resolved]
  - Product dose omission issue [Unknown]
  - Nausea [Not Recovered/Not Resolved]
  - Pain [Unknown]
  - Pyrexia [Not Recovered/Not Resolved]
  - Weight increased [Not Recovered/Not Resolved]

NARRATIVE: CASE EVENT DATE: 20220101
